FAERS Safety Report 8006588-6 (Version None)
Quarter: 2011Q4

REPORT INFORMATION
  Report Type: 
  Country: None (occurrence: None)
  Receive Date: 20111227
  Receipt Date: 20111214
  Transmission Date: 20120403
  Serious: Yes (Death)
  Sender: FDA-Public Use
  Company Number: US-ELI_LILLY_AND_COMPANY-US201112003997

PATIENT
  Age: 77 Year
  Sex: Female

DRUGS (5)
  1. ZYPREXA RELPREVV [Suspect]
     Indication: SCHIZOAFFECTIVE DISORDER
     Dosage: 300 MG, EVERY 2 WEEKS
     Dates: start: 20110511
  2. ZYPREXA RELPREVV [Suspect]
     Dosage: 405 MG, UNK
  3. ZYPREXA RELPREVV [Suspect]
     Dosage: 300 MG, EVERY 2 WEEKS
     Dates: end: 20111111
  4. LITHIUM [Concomitant]
  5. CLONAZEPAM [Concomitant]

REACTIONS (1)
  - CARDIAC ARREST [None]
